FAERS Safety Report 17179074 (Version 1)
Quarter: 2019Q4

REPORT INFORMATION
  Report Type: Spontaneous
  Country: US (occurrence: US)
  Receive Date: 20191219
  Receipt Date: 20191219
  Transmission Date: 20200122
  Serious: Yes (Other)
  Sender: FDA-Public Use
  Company Number: US-DRREDDYS-USA/USA/19/0117408

PATIENT
  Age: 4 Year
  Sex: Female

DRUGS (2)
  1. SEVELAMER CARBONATE TABLETS, 800 MG [Suspect]
     Active Substance: SEVELAMER CARBONATE
     Indication: CHELATION THERAPY
     Route: 048
  2. SODIUM POLYSTYRENE SULFONATE. [Suspect]
     Active Substance: SODIUM POLYSTYRENE SULFONATE
     Indication: CHELATION THERAPY
     Route: 065

REACTIONS (6)
  - Transient ischaemic attack [Unknown]
  - Condition aggravated [Unknown]
  - Rectal haemorrhage [Recovered/Resolved]
  - Anastomotic ulcer [Recovered/Resolved]
  - Gastrointestinal polyp [Unknown]
  - Gastrointestinal motility disorder [Unknown]
